FAERS Safety Report 12592329 (Version 1)
Quarter: 2016Q3

REPORT INFORMATION
  Report Type: Spontaneous
  Country: US (occurrence: None)
  Receive Date: 20160725
  Receipt Date: 20160725
  Transmission Date: 20161109
  Serious: Yes (Life-Threatening)
  Sender: FDA-Public Use
  Company Number: None

PATIENT
  Age: 69 Year
  Sex: Male

DRUGS (2)
  1. BUPIVACAINE. [Suspect]
     Active Substance: BUPIVACAINE
     Indication: PAIN
     Route: 038
     Dates: start: 20160603, end: 20160603
  2. EXPAREL [Suspect]
     Active Substance: BUPIVACAINE
     Indication: PAIN
     Route: 038
     Dates: start: 20160603, end: 20160603

REACTIONS (5)
  - Toxicity to various agents [None]
  - Potentiating drug interaction [None]
  - Hypotension [None]
  - Procedural complication [None]
  - Bradycardia [None]

NARRATIVE: CASE EVENT DATE: 20160603
